FAERS Safety Report 9782683 (Version 2)
Quarter: 2014Q1

REPORT INFORMATION
  Report Type: Report from Study
  Country: CA (occurrence: CA)
  Receive Date: 20131226
  Receipt Date: 20140108
  Transmission Date: 20141002
  Serious: Yes (Other)
  Sender: FDA-Public Use
  Company Number: PHHY2013CA151664

PATIENT
  Sex: Male

DRUGS (1)
  1. CLOZARIL [Suspect]
     Indication: SCHIZOPHRENIA
     Dosage: UNK UKN, UNK
     Dates: start: 20131216, end: 20131223

REACTIONS (5)
  - Anaphylactic shock [Unknown]
  - Bronchospasm [Unknown]
  - Rash [Unknown]
  - Aphonia [Unknown]
  - Oropharyngeal pain [Unknown]
